FAERS Safety Report 7579802-9 (Version None)
Quarter: 2011Q2

REPORT INFORMATION
  Report Type: 
  Country: None (occurrence: None)
  Receive Date: 20110629
  Receipt Date: 20110617
  Transmission Date: 20111010
  Serious: Yes (Hospitalization)
  Sender: FDA-Public Use
  Company Number: US-NOVOPROD-330107

PATIENT
  Sex: Male
  Weight: 87.528 kg

DRUGS (2)
  1. NOVOLOG [Suspect]
     Indication: TYPE 1 DIABETES MELLITUS
     Dosage: 13 U, TID
     Route: 058
     Dates: start: 20090101
  2. LANTUS [Concomitant]
     Indication: TYPE 1 DIABETES MELLITUS
     Dosage: 20 U, AT BEDTIME
     Route: 058

REACTIONS (4)
  - CELLULITIS [None]
  - LEUKOCYTOSIS [None]
  - HYPERGLYCAEMIA [None]
  - WOUND INFECTION [None]
